FAERS Safety Report 7074936-X (Version None)
Quarter: 2010Q4

REPORT INFORMATION
  Report Type: 
  Country: None (occurrence: None)
  Receive Date: 20101029
  Receipt Date: 20101019
  Transmission Date: 20110411
  Serious: Yes (Other)
  Sender: FDA-Public Use
  Company Number: JP-GILEAD-E2B_00000884

PATIENT
  Sex: Female

DRUGS (11)
  1. HEPSERA [Suspect]
     Indication: HEPATITIS B
     Dosage: 10MG PER DAY
     Route: 048
     Dates: start: 20080801
  2. TALION [Concomitant]
     Route: 048
  3. AMLODIN [Concomitant]
     Dosage: 5MG PER DAY
     Route: 048
  4. TAKEPRON [Concomitant]
  5. THYRADIN [Concomitant]
     Route: 048
  6. GASMOTIN [Concomitant]
     Route: 048
  7. MARZULENE [Concomitant]
     Route: 048
  8. HALCION [Concomitant]
     Route: 048
  9. NEUER [Concomitant]
     Route: 048
  10. GLYCYRON [Concomitant]
     Route: 065
  11. ZEFFIX [Concomitant]
     Indication: HEPATITIS B
     Dosage: 100MG PER DAY
     Route: 048

REACTIONS (6)
  - BETA 2 MICROGLOBULIN URINE INCREASED [None]
  - BLOOD CREATININE INCREASED [None]
  - INFLAMMATORY MARKER INCREASED [None]
  - RENAL IMPAIRMENT [None]
  - RENAL TUBULAR DISORDER [None]
  - TUBULOINTERSTITIAL NEPHRITIS [None]
